FAERS Safety Report 16214263 (Version 3)
Quarter: 2019Q2

REPORT INFORMATION
  Report Type: Report from Study
  Country: US (occurrence: US)
  Receive Date: 20190418
  Receipt Date: 20190621
  Transmission Date: 20190711
  Serious: Yes (Hospitalization, Other)
  Sender: FDA-Public Use
  Company Number: US-MALLINCKRODT-T201800160

PATIENT
  Age: 71 Year
  Sex: Male

DRUGS (10)
  1. REPOSITORY CORTICOTROPIN INJECTION [Suspect]
     Active Substance: CORTICOTROPIN
     Indication: FOCAL SEGMENTAL GLOMERULOSCLEROSIS
     Dosage: 16 UNITS, 2 TIMES PER WEEK (MONDAY/FRIDAY)
     Route: 058
     Dates: start: 20140212
  2. REPOSITORY CORTICOTROPIN INJECTION [Suspect]
     Active Substance: CORTICOTROPIN
     Indication: NEPHROTIC SYNDROME
     Dosage: 20 UNITS/ 0.25 ML, 3 TIMES PER WEEK
     Route: 058
  3. REPOSITORY CORTICOTROPIN INJECTION [Suspect]
     Active Substance: CORTICOTROPIN
     Dosage: 2 UNITS TWICE WEEKLY (FOR 2 WEEKS), 2 INJECTIONS 1 UNITS (FOR 2 WEEKS); 1 INJECTION 1 UNIT (2 WEEKS)
     Route: 058
     Dates: end: 20190512
  4. REPOSITORY CORTICOTROPIN INJECTION [Suspect]
     Active Substance: CORTICOTROPIN
     Dosage: 40 UNITS/0.5 ML,  2 TIMES PER WEEK (MONDAY AND FRIDAY)
     Route: 058
  5. REPOSITORY CORTICOTROPIN INJECTION [Suspect]
     Active Substance: CORTICOTROPIN
     Dosage: 0.5 ML, 3 TIMES PER WEEK
     Route: 058
  6. MITIGARE [Concomitant]
     Active Substance: COLCHICINE
     Indication: PRODUCT USED FOR UNKNOWN INDICATION
     Dosage: UNK
     Route: 065
  7. REPOSITORY CORTICOTROPIN INJECTION [Suspect]
     Active Substance: CORTICOTROPIN
     Dosage: 20 UNITS/ 0.25 ML, 2 TIMES PER WEEK (SUNDAY/THURSDAY)
     Route: 058
  8. REPOSITORY CORTICOTROPIN INJECTION [Suspect]
     Active Substance: CORTICOTROPIN
     Indication: OSTEOMYELITIS
     Dosage: 40 UNITS/0.5 ML,  2 TIMES PER WEEK (MONDAY AND FRIDAY)
     Route: 058
  9. REPOSITORY CORTICOTROPIN INJECTION [Suspect]
     Active Substance: CORTICOTROPIN
     Dosage: 20 UNITS/ 0.25 ML, 2 TIMES PER WEEK (MONDAY/FRIDAY)
     Route: 058
  10. REPOSITORY CORTICOTROPIN INJECTION [Suspect]
     Active Substance: CORTICOTROPIN
     Dosage: 2.5ML, 2 TIMES PER WEEK (MONDAY AND FRIDAY)
     Route: 058

REACTIONS (21)
  - Nephropathy toxic [Not Recovered/Not Resolved]
  - Dialysis [Not Recovered/Not Resolved]
  - Gait disturbance [Unknown]
  - Asthenia [Recovering/Resolving]
  - Arthropod bite [Recovering/Resolving]
  - Apparent death [Unknown]
  - Renal atrophy [Not Recovered/Not Resolved]
  - Weight fluctuation [Not Recovered/Not Resolved]
  - Fatigue [Recovering/Resolving]
  - Injection site bruising [Not Recovered/Not Resolved]
  - Influenza [Recovering/Resolving]
  - Upper respiratory tract infection [Unknown]
  - Treatment noncompliance [Unknown]
  - Renal impairment [Not Recovered/Not Resolved]
  - Paranasal sinus hypersecretion [Recovering/Resolving]
  - Blood pressure increased [Not Recovered/Not Resolved]
  - Fluid retention [Not Recovered/Not Resolved]
  - Product dose omission [Not Recovered/Not Resolved]
  - Haematochezia [Not Recovered/Not Resolved]
  - Sepsis [Unknown]
  - Wrong technique in product usage process [Not Recovered/Not Resolved]

NARRATIVE: CASE EVENT DATE: 20180101
